FAERS Safety Report 15121070 (Version 3)
Quarter: 2019Q1

REPORT INFORMATION
  Report Type: Spontaneous
  Country: US (occurrence: US)
  Receive Date: 20180709
  Receipt Date: 20190320
  Transmission Date: 20190417
  Serious: No
  Sender: FDA-Public Use
  Company Number: US-SA-2018SA181709

PATIENT
  Sex: Female

DRUGS (2)
  1. DUPIXENT [Suspect]
     Active Substance: DUPILUMAB
     Indication: DERMATITIS ATOPIC
     Dosage: 300 MG, QOW
     Route: 058
     Dates: start: 201804
  2. BYVALSON [Concomitant]
     Active Substance: NEBIVOLOL HYDROCHLORIDE\VALSARTAN
     Dosage: 5MG, 80 MG TABLET

REACTIONS (7)
  - Eye pruritus [Unknown]
  - Drug ineffective [Unknown]
  - Injection site pain [Unknown]
  - Erythema [Unknown]
  - Oral pruritus [Unknown]
  - Injection site pruritus [Unknown]
  - Injection site irritation [Unknown]

NARRATIVE: CASE EVENT DATE: 201806
